FAERS Safety Report 21751429 (Version 1)
Quarter: 2022Q4

REPORT INFORMATION
  Report Type: Spontaneous
  Country: US (occurrence: None)
  Receive Date: 20221220
  Receipt Date: 20221220
  Transmission Date: 20230112
  Serious: Yes (Other)
  Sender: FDA-Public Use
  Company Number: US-ROCHE-3242327

PATIENT
  Age: 69 Year
  Sex: Female

DRUGS (2)
  1. AVASTIN [Suspect]
     Active Substance: BEVACIZUMAB
     Indication: Product used for unknown indication
     Route: 042
  2. LONSURF [Suspect]
     Active Substance: TIPIRACIL HYDROCHLORIDE\TRIFLURIDINE
     Indication: Product used for unknown indication
     Dosage: 120.0 MILLIGRAM(S) (60 MILLIGRAM(S), 1 IN 12 HOUR)
     Route: 048
     Dates: start: 20220829

REACTIONS (3)
  - Hepatic cancer [Unknown]
  - Pharyngeal neoplasm [Unknown]
  - Neoplasm [Unknown]
